FAERS Safety Report 10952936 (Version 1)
Quarter: 2015Q1

REPORT INFORMATION
  Report Type: Spontaneous
  Country: US (occurrence: None)
  Receive Date: 20150324
  Receipt Date: 20150324
  Transmission Date: 20150721
  Serious: Yes (Other)
  Sender: FDA-Public Use
  Company Number: None

PATIENT
  Age: 49 Year
  Sex: Female
  Weight: 74.84 kg

DRUGS (6)
  1. RANITIDINE [Concomitant]
     Active Substance: RANITIDINE\RANITIDINE HYDROCHLORIDE
  2. CYCLOBENZAPRINE [Concomitant]
     Active Substance: CYCLOBENZAPRINE
  3. MELOXICAM. [Concomitant]
     Active Substance: MELOXICAM
  4. VITAMINS W/CALCIUM [Concomitant]
  5. RX 643274 HYDROCODONE/ACE. 5/325 MG 360/CAPSULE-SHAPED WHITE [Suspect]
     Active Substance: ACETAMINOPHEN\HYDROCODONE BITARTRATE
     Indication: PAIN
     Route: 048
     Dates: start: 20150212, end: 20150213
  6. PREGABALIN. [Concomitant]
     Active Substance: PREGABALIN

REACTIONS (13)
  - Myalgia [None]
  - Mood altered [None]
  - Dry mouth [None]
  - Hostility [None]
  - Muscle tightness [None]
  - Irritability [None]
  - Inflammation [None]
  - Headache [None]
  - Dyspnoea [None]
  - Vomiting [None]
  - Asthenia [None]
  - Nausea [None]
  - Pain [None]

NARRATIVE: CASE EVENT DATE: 20150212
